FAERS Safety Report 23102781 (Version 1)
Quarter: 2023Q4

REPORT INFORMATION
  Report Type: Report from Study
  Country: US (occurrence: US)
  Receive Date: 20231025
  Receipt Date: 20231025
  Transmission Date: 20240110
  Serious: Yes (Other)
  Sender: FDA-Public Use
  Company Number: US-ABBVIE-5392039

PATIENT
  Sex: Female
  Weight: 74 kg

DRUGS (4)
  1. HUMIRA [Suspect]
     Active Substance: ADALIMUMAB
     Indication: Rheumatoid arthritis
     Route: 058
     Dates: start: 20220601, end: 2023
  2. HUMIRA [Suspect]
     Active Substance: ADALIMUMAB
     Route: 058
     Dates: start: 202308
  3. HUMIRA [Suspect]
     Active Substance: ADALIMUMAB
     Dosage: START DATE AND END DATE- 2023
     Route: 058
  4. IRON [Concomitant]
     Active Substance: IRON
     Indication: Anaemia
     Route: 048
     Dates: start: 202205, end: 202207

REACTIONS (6)
  - Dry skin [Unknown]
  - Anaemia [Unknown]
  - Pruritus [Unknown]
  - Irritability [Unknown]
  - Neuropathy peripheral [Unknown]
  - Contusion [Unknown]

NARRATIVE: CASE EVENT DATE: 20230101
